FAERS Safety Report 21609384 (Version 1)
Quarter: 2022Q4

REPORT INFORMATION
  Report Type: Spontaneous
  Country: US (occurrence: US)
  Receive Date: 20221117
  Receipt Date: 20221117
  Transmission Date: 20230113
  Serious: Yes (Other)
  Sender: FDA-Public Use
  Company Number: US-002147023-NVSC2022US258459

PATIENT
  Sex: Female

DRUGS (2)
  1. DORZOLAMIDE [Suspect]
     Active Substance: DORZOLAMIDE
     Indication: Product used for unknown indication
     Dosage: UNK, BID
     Route: 065
  2. LATANOPROST [Suspect]
     Active Substance: LATANOPROST
     Indication: Product used for unknown indication
     Dosage: UNK, QD
     Route: 065

REACTIONS (2)
  - Blindness [Unknown]
  - Implant site injury [Unknown]
